FAERS Safety Report 5907034-6 (Version None)
Quarter: 2008Q4

REPORT INFORMATION
  Report Type: 
  Country: None (occurrence: None)
  Receive Date: 20081003
  Receipt Date: 20080925
  Transmission Date: 20090506
  Serious: Yes (Hospitalization)
  Sender: FDA-Public Use
  Company Number: JP-BAYER-200812246BYL

PATIENT
  Age: 62 Year
  Sex: Male
  Weight: 56 kg

DRUGS (7)
  1. NEXAVAR [Suspect]
     Indication: RENAL CELL CARCINOMA STAGE IV
     Dosage: UNIT DOSE: 200 MG
     Route: 048
     Dates: start: 20080806, end: 20080819
  2. NEXAVAR [Suspect]
     Dosage: UNIT DOSE: 200 MG
     Route: 048
     Dates: start: 20080827
  3. VOLTAREN [Concomitant]
     Route: 054
     Dates: start: 20080818
  4. MUCOSTA [Concomitant]
     Route: 048
     Dates: start: 20080820
  5. SALOBEL [Concomitant]
     Route: 048
     Dates: start: 20080825
  6. BEZATOL SR [Concomitant]
     Route: 048
     Dates: start: 20080825
  7. POSTERISAN [Concomitant]
     Route: 061
     Dates: start: 20080911

REACTIONS (3)
  - HEPATIC FUNCTION ABNORMAL [None]
  - PALMAR-PLANTAR ERYTHRODYSAESTHESIA SYNDROME [None]
  - PYREXIA [None]
